FAERS Safety Report 6862624-1 (Version None)
Quarter: 2010Q2

REPORT INFORMATION
  Report Type: 
  Country: None (occurrence: None)
  Receive Date: 20100528
  Receipt Date: 20100205
  Transmission Date: 20101027
  Serious: Yes (Hospitalization)
  Sender: FDA-Public Use
  Company Number: CIP09001189

PATIENT
  Sex: Female

DRUGS (19)
  1. ACTONEL [Suspect]
     Indication: OSTEOPENIA
     Dosage: 35 MG, ORAL
     Route: 048
     Dates: start: 20030227, end: 20050726
  2. IMITREX /01044801/ (SUMATRIPTAN) [Concomitant]
  3. TEMAZEPAM [Concomitant]
  4. BIAXIN XL [Concomitant]
  5. PROPOXYPHENE NAPSYLATE AND ACETAMINOPHEN (DEXTROPROPOXYPHENE NAPSILATE [Concomitant]
  6. AMOXICILLIN [Concomitant]
  7. OXYCODONE HCL [Concomitant]
  8. OXYCONTIN [Concomitant]
  9. TRAMADOL HCL [Concomitant]
  10. EFFEXOR /01233801/ (VENLAFAXINE) [Concomitant]
  11. LEVAQUIN [Concomitant]
  12. ZYMAR [Concomitant]
  13. PROMETHAZINE [Concomitant]
  14. GLYCOLAX (MACROGOL) [Concomitant]
  15. EFUDEX [Concomitant]
  16. ALCLOMETASONE (ALCLOMETASONE) [Concomitant]
  17. CIPROFLOXACIN [Concomitant]
  18. ASTELIN /00085801/ (DIPROPHYLLINE) [Concomitant]
  19. METHADONE HCL [Concomitant]

REACTIONS (7)
  - BONE FRAGMENTATION [None]
  - CONDITION AGGRAVATED [None]
  - FACIAL PAIN [None]
  - JAW CYST [None]
  - JOINT CREPITATION [None]
  - JOINT RANGE OF MOTION DECREASED [None]
  - OSTEONECROSIS [None]
